FAERS Safety Report 16130076 (Version 1)
Quarter: 2019Q1

REPORT INFORMATION
  Report Type: Spontaneous
  Country: FR (occurrence: FR)
  Receive Date: 20190328
  Receipt Date: 20190328
  Transmission Date: 20190418
  Serious: Yes (Other)
  Sender: FDA-Public Use
  Company Number: FR-PFIZER INC-2019129813

PATIENT
  Age: 16 Year
  Sex: Female

DRUGS (2)
  1. CYTOTEC [Suspect]
     Active Substance: MISOPROSTOL
     Indication: ABORTION INDUCED
     Dosage: UNK (ACCORDING TO MOTHER, TAKEN 8 + 2 TABLETS/ ACCORDING TO HOSPITAL, TAKEN 2 TABLETS)
     Route: 048
     Dates: start: 20181121, end: 20181121
  2. ZITHROMAX [Suspect]
     Active Substance: AZITHROMYCIN DIHYDRATE
     Indication: ABORTION INDUCED
     Dosage: 4 DF, UNK
     Route: 048
     Dates: start: 20181120, end: 20181120

REACTIONS (5)
  - Hyperhidrosis [Recovered/Resolved]
  - Seizure [Recovered/Resolved]
  - Formication [Recovered/Resolved]
  - Product use in unapproved indication [Unknown]
  - Abdominal pain [Recovered/Resolved]

NARRATIVE: CASE EVENT DATE: 201811
